FAERS Safety Report 5359577-4 (Version None)
Quarter: 2007Q2

REPORT INFORMATION
  Report Type: 
  Country: None (occurrence: None)
  Receive Date: 20070615
  Receipt Date: 20070604
  Transmission Date: 20071010
  Serious: Yes (Death)
  Sender: FDA-Public Use
  Company Number: IN-PFIZER INC-2007047545

PATIENT
  Age: 80 Year
  Sex: Female

DRUGS (5)
  1. MAGNEX [Suspect]
     Indication: HYDROPNEUMOTHORAX
     Route: 042
  2. ENOXAPARIN SODIUM [Concomitant]
     Dosage: DAILY DOSE:.4ML
     Route: 058
  3. ACETYLSALICYLIC ACID/CLOPIDOGREL [Concomitant]
     Dosage: DAILY DOSE:150MG
     Route: 048
  4. I.V. SOLUTIONS [Concomitant]
  5. ALL OTHER THERAPEUTIC PRODUCTS [Concomitant]

REACTIONS (2)
  - GRAFT HAEMORRHAGE [None]
  - HAEMATURIA [None]
